FAERS Safety Report 7154149-3 (Version None)
Quarter: 2010Q4

REPORT INFORMATION
  Report Type: 
  Country: None (occurrence: None)
  Receive Date: 20101213
  Receipt Date: 20101202
  Transmission Date: 20110411
  Serious: Yes (Other)
  Sender: FDA-Public Use
  Company Number: US-PFIZER INC-2010163378

PATIENT
  Sex: Female
  Weight: 55 kg

DRUGS (7)
  1. CHANTIX [Suspect]
     Indication: SMOKING CESSATION THERAPY
     Dosage: 0.5 MG, DAILY
     Route: 048
     Dates: start: 20101108
  2. SULFAMETHOXAZOLE AND TRIMETHOPRIM [Concomitant]
     Dosage: UNK
  3. PROCARDIA [Concomitant]
     Dosage: UNK
  4. ZESTRIL [Concomitant]
     Dosage: UNK
  5. MEVACOR [Concomitant]
     Dosage: UNK
  6. MICROZIDE [Concomitant]
     Dosage: UNK
  7. ACETYLSALICYLIC ACID [Concomitant]
     Dosage: UNK

REACTIONS (2)
  - NAUSEA [None]
  - URINARY TRACT INFECTION [None]
